FAERS Safety Report 8886492 (Version 1)
Quarter: 2012Q4

REPORT INFORMATION
  Report Type: Report from Study
  Country: CH (occurrence: CH)
  Receive Date: 20121105
  Receipt Date: 20121105
  Transmission Date: 20130627
  Serious: Yes (Other)
  Sender: FDA-Public Use
  Company Number: PHHO2012CH015865

PATIENT
  Age: 53 Year
  Sex: Female

DRUGS (4)
  1. CGS 20267 [Suspect]
     Indication: BREAST CANCER
     Dosage: 2.5 mg, QD
     Route: 048
     Dates: start: 20100925
  2. FEMARA [Suspect]
     Dosage: UNK
     Dates: start: 20080901
  3. FLUOXETINE [Concomitant]
     Dosage: 20 mg, UNK
     Route: 048
     Dates: start: 200512
  4. SPIRONOLACTON [Concomitant]
     Dosage: 50 mg, UNK
     Route: 048

REACTIONS (1)
  - Ovarian cyst [Recovered/Resolved]
